FAERS Safety Report 5001710-8 (Version None)
Quarter: 2006Q2

REPORT INFORMATION
  Report Type: 
  Country: None (occurrence: None)
  Receive Date: 20060515
  Receipt Date: 20060510
  Transmission Date: 20061013
  Serious: Yes (Death, Hospitalization, Other)
  Sender: FDA-Public Use
  Company Number: PHBS2006ES06880

PATIENT
  Age: 51 Year
  Sex: Male

DRUGS (6)
  1. CERTICAN [Suspect]
     Indication: LUNG TRANSPLANT
     Dosage: 0.25 UNK, UNK
     Route: 065
     Dates: start: 20060303, end: 20060314
  2. CYCLOSPORINE [Suspect]
     Indication: LUNG TRANSPLANT
     Dosage: 75 MG/DAY
     Route: 065
     Dates: end: 20060322
  3. AZATIOPRIN [Concomitant]
     Dates: start: 20060303
  4. URBASON [Concomitant]
     Dosage: 4 MG, UNK
     Dates: start: 20060322
  5. VALGANCICLOVIR HCL [Concomitant]
     Dosage: 900 MG/D
  6. SEPTRIN [Concomitant]
     Dosage: 80/400 MG
     Dates: start: 20060303

REACTIONS (8)
  - BLOOD CREATININE INCREASED [None]
  - BLOOD UREA INCREASED [None]
  - CARDIAC FAILURE [None]
  - DRUG INTERACTION [None]
  - HAEMOGLOBIN DECREASED [None]
  - HAEMOLYTIC URAEMIC SYNDROME [None]
  - PLATELET COUNT DECREASED [None]
  - WHITE BLOOD CELL COUNT DECREASED [None]
